FAERS Safety Report 19098092 (Version 1)
Quarter: 2021Q2

REPORT INFORMATION
  Report Type: Spontaneous
  Country: US (occurrence: US)
  Receive Date: 20210406
  Receipt Date: 20210406
  Transmission Date: 20210717
  Serious: Yes (Other)
  Sender: FDA-Public Use
  Company Number: NVSC2021US076836

PATIENT
  Age: 12 Year
  Sex: Female

DRUGS (13)
  1. VINCRISTINE [Suspect]
     Active Substance: VINCRISTINE
     Indication: GANGLIOGLIOMA
     Route: 065
  2. VEMURAFENIB. [Suspect]
     Active Substance: VEMURAFENIB
     Indication: GANGLIOGLIOMA
     Route: 065
  3. AVASTIN [Suspect]
     Active Substance: BEVACIZUMAB
     Indication: GANGLIOGLIOMA
     Route: 065
  4. VINBLASTINE [Suspect]
     Active Substance: VINBLASTINE
     Indication: GANGLIOGLIOMA
     Route: 065
  5. CCNU [Suspect]
     Active Substance: LOMUSTINE
     Indication: GANGLIOGLIOMA
     Route: 065
  6. SORAFENIB [Suspect]
     Active Substance: SORAFENIB
     Indication: GANGLIOGLIOMA
     Route: 065
  7. ROSA [CETRIMONIUM BROMIDE;CINCHOCAINE HYDROCHLORIDE;DIPHENHYDRAMINE HYDROCHLORIDE;ENOXOLONE;NAPHAZOLINE HYDROCHLORIDE] [Suspect]
     Active Substance: CETRIMONIUM BROMIDE\DIBUCAINE HCL\DIPHENHYDRAMINE HCL\ENOXOLONE\NAPHAZOLINE HCL
     Indication: GANGLIOGLIOMA
     Route: 065
  8. POLY ICLC [Suspect]
     Active Substance: HILTONOL
     Indication: GANGLIOGLIOMA
     Route: 065
  9. TEMOZOLOMIDE. [Suspect]
     Active Substance: TEMOZOLOMIDE
     Indication: GANGLIOGLIOMA
     Route: 065
  10. PROCARBAZINE [Suspect]
     Active Substance: PROCARBAZINE
     Indication: GANGLIOGLIOMA
     Route: 065
  11. EVEROLIMUS. [Suspect]
     Active Substance: EVEROLIMUS
     Indication: GANGLIOGLIOMA
     Route: 065
  12. CARBOPLATIN. [Suspect]
     Active Substance: CARBOPLATIN
     Indication: GANGLIOGLIOMA
     Route: 065
  13. THIOGUANINE [Suspect]
     Active Substance: THIOGUANINE
     Indication: GANGLIOGLIOMA
     Route: 065

REACTIONS (3)
  - Ganglioglioma [Unknown]
  - Product use in unapproved indication [Unknown]
  - Malignant neoplasm progression [Unknown]
